FAERS Safety Report 10224818 (Version 2)
Quarter: 2014Q2

REPORT INFORMATION
  Report Type: Spontaneous
  Country: CA (occurrence: CA)
  Receive Date: 20140609
  Receipt Date: 20140617
  Transmission Date: 20141212
  Serious: Yes (Other)
  Sender: FDA-Public Use
  Company Number: CA-GLAXOSMITHKLINE-A1074088A

PATIENT
  Age: 60 Year
  Sex: Female

DRUGS (1)
  1. TAFINLAR [Suspect]
     Indication: METASTATIC MALIGNANT MELANOMA
     Dosage: 150MG TWICE PER DAY
     Route: 048
     Dates: start: 20140519

REACTIONS (7)
  - Chills [Recovered/Resolved]
  - Arthralgia [Recovered/Resolved]
  - Pyrexia [Recovered/Resolved]
  - Headache [Unknown]
  - Viral infection [Unknown]
  - Decreased appetite [Recovered/Resolved]
  - Malignant melanoma [Unknown]
